FAERS Safety Report 4809732-4 (Version None)
Quarter: 2005Q4

REPORT INFORMATION
  Report Type: 
  Country: None (occurrence: None)
  Receive Date: 20051026
  Receipt Date: 20050704
  Transmission Date: 20060501
  Serious: Yes (Hospitalization, Other)
  Sender: FDA-Public Use
  Company Number: CA-SP-2005-01280

PATIENT
  Age: 11 Year
  Sex: Female

DRUGS (3)
  1. INACTIVATED HUMAN RABIES VACCINE MERIEUX [Suspect]
     Indication: ACCIDENTAL EXPOSURE
     Dates: start: 20050208
  2. INACTIVATED HUMAN RABIES VACCINE MERIEUX [Suspect]
     Dates: start: 20050208
  3. IMOGAM RABIES PASTEURIZED [Suspect]

REACTIONS (7)
  - ANAEMIA [None]
  - EAR INFECTION [None]
  - FACE OEDEMA [None]
  - FACIAL PALSY [None]
  - HYPERTENSION [None]
  - NEPHROTIC SYNDROME [None]
  - OEDEMA PERIPHERAL [None]
